FAERS Safety Report 17324501 (Version 1)
Quarter: 2020Q1

REPORT INFORMATION
  Report Type: Spontaneous
  Country: US (occurrence: US)
  Receive Date: 20200124
  Receipt Date: 20200124
  Transmission Date: 20200409
  Serious: Yes (Death)
  Sender: FDA-Public Use
  Company Number: None

PATIENT
  Age: 71 Year
  Sex: Female

DRUGS (1)
  1. TOBRAMYCIN. [Suspect]
     Active Substance: TOBRAMYCIN
     Indication: CYSTIC FIBROSIS LUNG
     Dosage: ?          OTHER FREQUENCY:EVERY 28 DAYS;?
     Route: 045
     Dates: start: 20190419

REACTIONS (1)
  - Death [None]

NARRATIVE: CASE EVENT DATE: 20191205
